FAERS Safety Report 5480027-1 (Version None)
Quarter: 2007Q4

REPORT INFORMATION
  Report Type: 
  Country: None (occurrence: None)
  Receive Date: 20071008
  Receipt Date: 20070927
  Transmission Date: 20080405
  Serious: Yes (Other)
  Sender: FDA-Public Use
  Company Number: GB-PFIZER INC-2007081135

PATIENT
  Age: 79 Year
  Sex: Male
  Weight: 51 kg

DRUGS (6)
  1. CHAMPIX [Suspect]
     Indication: SMOKING CESSATION THERAPY
     Route: 048
     Dates: start: 20070607, end: 20070607
  2. LANSOPRAZOLE [Concomitant]
     Route: 048
  3. PREDNISOLONE [Concomitant]
     Indication: BRONCHITIS
     Route: 048
  4. SPIRIVA [Concomitant]
     Route: 055
  5. SYMBICORT [Concomitant]
     Dosage: FREQ:AS NECESSARY
     Route: 055
  6. TERBUTALINE SULFATE [Concomitant]
     Dosage: FREQ:AS NECESSARY
     Route: 055

REACTIONS (2)
  - BALANCE DISORDER [None]
  - COORDINATION ABNORMAL [None]
